FAERS Safety Report 13808502 (Version 8)
Quarter: 2020Q1

REPORT INFORMATION
  Report Type: Report from Study
  Country: DE (occurrence: DE)
  Receive Date: 20170728
  Receipt Date: 20200331
  Transmission Date: 20200409
  Serious: Yes (Hospitalization, Other)
  Sender: FDA-Public Use
  Company Number: PHHY2016DE040162

PATIENT
  Age: 67 Year
  Sex: Female
  Weight: 56 kg

DRUGS (12)
  1. IBUPROFEN. [Concomitant]
     Active Substance: IBUPROFEN
     Indication: PRODUCT USED FOR UNKNOWN INDICATION
     Dosage: 600 MG, TID
     Route: 065
  2. PANTOZOL [Concomitant]
     Active Substance: PANTOPRAZOLE SODIUM
     Dosage: UNK UNK, BID
     Route: 065
  3. PANTOZOL [Concomitant]
     Active Substance: PANTOPRAZOLE SODIUM
     Indication: PRODUCT USED FOR UNKNOWN INDICATION
     Dosage: UNK UNK, BID
     Route: 065
  4. GILENYA [Suspect]
     Active Substance: FINGOLIMOD HYDROCHLORIDE
     Indication: MULTIPLE SCLEROSIS
     Dosage: 0.5 MG, QD
     Route: 048
     Dates: start: 20140407, end: 2019
  5. FAMPYRA [Concomitant]
     Active Substance: DALFAMPRIDINE
     Dosage: 10 MG, BID
     Route: 065
  6. LYRICA [Concomitant]
     Active Substance: PREGABALIN
     Indication: PRODUCT USED FOR UNKNOWN INDICATION
     Dosage: 150 MG, QD
     Route: 065
  7. IBUPROFEN. [Concomitant]
     Active Substance: IBUPROFEN
     Dosage: 600 MG, TID
     Route: 065
  8. PANTOZOL [Concomitant]
     Active Substance: PANTOPRAZOLE SODIUM
     Dosage: UNK UNK, BID
     Route: 065
  9. FENTANYL. [Concomitant]
     Active Substance: FENTANYL
     Indication: PRODUCT USED FOR UNKNOWN INDICATION
     Dosage: 50 UG, EVERY THREE DAYS
     Route: 065
  10. FAMPYRA [Concomitant]
     Active Substance: DALFAMPRIDINE
     Indication: PRODUCT USED FOR UNKNOWN INDICATION
     Dosage: 10 MG, BID
     Route: 065
  11. DEKRISTOL [Concomitant]
     Active Substance: CHOLECALCIFEROL
     Indication: PRODUCT USED FOR UNKNOWN INDICATION
     Dosage: 20000 IU, AT MONDAYS
     Route: 065
  12. TOLTERODIN [Concomitant]
     Active Substance: TOLTERODINE TARTRATE
     Indication: PRODUCT USED FOR UNKNOWN INDICATION
     Dosage: 1 MG, QD
     Route: 065

REACTIONS (25)
  - Secretion discharge [Unknown]
  - Atrioventricular block first degree [Unknown]
  - Pain in extremity [Unknown]
  - Tenderness [Unknown]
  - Abscess [Unknown]
  - Anaemia postoperative [Recovered/Resolved]
  - Anaemia [Unknown]
  - White blood cell count decreased [Unknown]
  - Arteriosclerosis [Unknown]
  - Peripheral arterial occlusive disease [Unknown]
  - Peripheral coldness [Unknown]
  - Gamma-glutamyltransferase increased [Unknown]
  - Muscle atrophy [Unknown]
  - Inflammation of wound [Unknown]
  - Alanine aminotransferase increased [Unknown]
  - Iliac artery occlusion [Unknown]
  - Hypertension [Unknown]
  - Peripheral ischaemia [Unknown]
  - Skin ulcer [Unknown]
  - Hypokalaemia [Recovered/Resolved]
  - Lymphocyte count decreased [Unknown]
  - Peripheral artery thrombosis [Unknown]
  - Skin discolouration [Unknown]
  - Gangrene [Unknown]
  - Osteomyelitis [Unknown]

NARRATIVE: CASE EVENT DATE: 20150708
